FAERS Safety Report 5723648-0 (Version None)
Quarter: 2008Q2

REPORT INFORMATION
  Report Type: 
  Country: None (occurrence: None)
  Receive Date: 20080430
  Receipt Date: 20080422
  Transmission Date: 20081010
  Serious: Yes (Hospitalization)
  Sender: FDA-Public Use
  Company Number: GB-ROCHE-560280

PATIENT
  Sex: Female
  Weight: 78 kg

DRUGS (9)
  1. ORLISTAT [Suspect]
     Indication: OBESITY
     Route: 048
     Dates: start: 20071017
  2. AMITRIPTLINE HCL [Concomitant]
     Indication: PAIN
     Route: 048
  3. FOLIC ACID [Concomitant]
     Dosage: 1 TABLET FOR 6 DAYS PER WEEK
     Route: 048
  4. METHOTREXATE [Concomitant]
     Dosage: SELF ADMINISTERED INJECTION
     Route: 065
  5. ZANIDIP [Concomitant]
     Indication: BLOOD PRESSURE
     Route: 048
  6. TROSPIUM [Concomitant]
     Indication: UNEVALUABLE EVENT
     Route: 048
  7. PLAQUENIL [Concomitant]
     Route: 048
  8. FUROSEMIDE [Concomitant]
     Indication: DIURETIC THERAPY
     Route: 048
  9. CALCICHEW [Concomitant]
     Indication: RHEUMATOID ARTHRITIS
     Route: 048

REACTIONS (2)
  - RHEUMATOID ARTHRITIS [None]
  - SYSTEMIC LUPUS ERYTHEMATOSUS [None]
